FAERS Safety Report 4686465-9 (Version None)
Quarter: 2005Q2

REPORT INFORMATION
  Report Type: 
  Country: None (occurrence: None)
  Receive Date: 20050606
  Receipt Date: 20050524
  Transmission Date: 20051028
  Serious: Yes (Hospitalization)
  Sender: FDA-Public Use
  Company Number: 2005079928

PATIENT
  Age: 71 Year
  Sex: Male
  Weight: 60 kg

DRUGS (9)
  1. ZYVOX [Suspect]
     Dosage: 1200 MG (600 MG 2 IN 1 D) ORAL
     Route: 048
     Dates: start: 20050310, end: 20050420
  2. OFLOXACIN [Suspect]
     Dosage: 400 MG (200 MG 2 IN 1 D) ORAL
     Route: 048
     Dates: start: 20050310, end: 20050420
  3. RIFAMPICIN [Suspect]
     Dosage: 600 MG (300 MG 2 IN 1 D) ORAL
     Route: 048
     Dates: start: 20050112, end: 20050426
  4. ISONIAZID [Suspect]
     Dosage: 250 MG (1 IN 1 D)ORAL
     Route: 048
     Dates: start: 20050127, end: 20050426
  5. AMITRIPTYLINE HYDROCHLORIDE [Suspect]
     Dosage: 8 DOSE FORMS (1 IN 1 D) ORAL
     Route: 048
     Dates: start: 20050203, end: 20050425
  6. HYDROMORPHONE HCL [Concomitant]
  7. PREDNISOLONE SODIUM SULFOBENZOATE (PREDNISOLONE SODIUM SULFOBENZOATE) [Concomitant]
  8. HYDROXYZINE HCL [Concomitant]
  9. CALCIUM CARBONATE/COLECALCIFEROL (CALCIUM CARBONATE, COLECALCIFEROL) [Concomitant]

REACTIONS (4)
  - BILIRUBIN CONJUGATED INCREASED [None]
  - BLOOD BILIRUBIN INCREASED [None]
  - GAMMA-GLUTAMYLTRANSFERASE INCREASED [None]
  - JAUNDICE [None]
